FAERS Safety Report 19817045 (Version 1)
Quarter: 2021Q3

REPORT INFORMATION
  Report Type: Spontaneous
  Country: US (occurrence: US)
  Receive Date: 20210910
  Receipt Date: 20210910
  Transmission Date: 20211014
  Serious: Yes (Other)
  Sender: FDA-Public Use
  Company Number: US-INSUD PHARMA-2109US00970

PATIENT

DRUGS (4)
  1. CEFEPIME [Suspect]
     Active Substance: CEFEPIME HYDROCHLORIDE
     Indication: DIABETIC FOOT
     Dosage: UNKNOWN
     Route: 065
  2. NUVESSA [Suspect]
     Active Substance: METRONIDAZOLE
     Indication: DIABETIC FOOT
     Dosage: UNKNOWN
     Route: 065
  3. ANTIBIOTICS [Suspect]
     Active Substance: UNSPECIFIED INGREDIENT
     Indication: STAPHYLOCOCCAL INFECTION
     Dosage: LONG?TERM THERAPY
     Route: 065
  4. VANCOMYCIN [Suspect]
     Active Substance: VANCOMYCIN
     Indication: DIABETIC FOOT
     Dosage: UNKNOWN
     Route: 065

REACTIONS (6)
  - Vomiting [Unknown]
  - Nosocomial infection [Unknown]
  - Opportunistic infection [Unknown]
  - Stenotrophomonas infection [Unknown]
  - Leukocytosis [Unknown]
  - Pyrexia [Unknown]
